FAERS Safety Report 12158218 (Version 1)
Quarter: 2016Q1

REPORT INFORMATION
  Report Type: Spontaneous
  Country: US (occurrence: US)
  Receive Date: 20160308
  Receipt Date: 20160308
  Transmission Date: 20160526
  Serious: No
  Sender: FDA-Public Use
  Company Number: US-SUN PHARMACEUTICAL INDUSTRIES LTD-2015US-94723

PATIENT
  Age: 19 Year
  Sex: Female

DRUGS (1)
  1. SUMATRIPTAN. [Suspect]
     Active Substance: SUMATRIPTAN
     Indication: MIGRAINE
     Dosage: 50 MG, SINGLE
     Route: 065
     Dates: start: 20150227

REACTIONS (2)
  - Asthenia [Unknown]
  - Burning sensation [Unknown]

NARRATIVE: CASE EVENT DATE: 20150227
